FAERS Safety Report 21248066 (Version 2)
Quarter: 2022Q3

REPORT INFORMATION
  Report Type: Report from Study
  Country: US (occurrence: US)
  Receive Date: 20220824
  Receipt Date: 20220826
  Transmission Date: 20221026
  Serious: No
  Sender: FDA-Public Use
  Company Number: US-NOVARTISTESTPH-NVSC2022US189205

PATIENT
  Sex: Female

DRUGS (2)
  1. PIQRAY [Suspect]
     Active Substance: ALPELISIB
     Indication: Breast cancer
     Dosage: 300 MG, QD
     Route: 048
     Dates: start: 20220730
  2. PIQRAY [Suspect]
     Active Substance: ALPELISIB
     Dosage: 250 MG, QD
     Route: 048

REACTIONS (7)
  - Drug intolerance [Unknown]
  - Illness [Unknown]
  - Liver function test abnormal [Unknown]
  - Diarrhoea [Unknown]
  - Vomiting [Unknown]
  - Rash [Unknown]
  - Weight decreased [Unknown]
